FAERS Safety Report 7945593-2 (Version None)
Quarter: 2011Q4

REPORT INFORMATION
  Report Type: 
  Country: None (occurrence: None)
  Receive Date: 20111129
  Receipt Date: 20111117
  Transmission Date: 20120403
  Serious: No
  Sender: FDA-Public Use
  Company Number: US-B.I. PHARMACEUTICALS,INC./RIDGEFIELD-2011-BP-10069BP

PATIENT
  Sex: Female

DRUGS (9)
  1. PEPCID [Concomitant]
     Indication: GASTROOESOPHAGEAL REFLUX DISEASE
  2. CALCIUM [Concomitant]
     Indication: SUPPLEMENTATION THERAPY
     Route: 048
  3. VITAMIN B-12 [Concomitant]
     Indication: SUPPLEMENTATION THERAPY
     Route: 048
  4. PRADAXA [Suspect]
     Indication: ATRIAL FIBRILLATION
     Dosage: 300 MG
     Route: 048
     Dates: start: 20110301
  5. PEPCID [Concomitant]
     Indication: GASTRITIS
     Dosage: 40 MG
     Route: 048
  6. FISH OIL [Concomitant]
     Indication: SUPPLEMENTATION THERAPY
     Route: 048
  7. HYDROCHLOROTHIAZIDE [Concomitant]
     Indication: HYPERTENSION
     Route: 048
  8. MULTIVITAMIN [Concomitant]
     Indication: SUPPLEMENTATION THERAPY
     Route: 048
  9. NORVASC [Concomitant]
     Indication: HYPERTENSION
     Route: 048

REACTIONS (11)
  - ARTHRALGIA [None]
  - DYSPEPSIA [None]
  - HAEMORRHOIDS [None]
  - PRURITUS [None]
  - DIZZINESS [None]
  - TOOTH INFECTION [None]
  - VISUAL ACUITY REDUCED [None]
  - BALANCE DISORDER [None]
  - ABDOMINAL DISCOMFORT [None]
  - FEELING ABNORMAL [None]
  - ABDOMINAL PAIN UPPER [None]
